FAERS Safety Report 10372845 (Version 1)
Quarter: 2014Q3

REPORT INFORMATION
  Report Type: Spontaneous
  Country: US (occurrence: US)
  Receive Date: 20140808
  Receipt Date: 20140808
  Transmission Date: 20150326
  Serious: No
  Sender: FDA-Public Use
  Company Number: US-BRISTOL-MYERS SQUIBB COMPANY-19515527

PATIENT
  Age: 66 Year
  Sex: Male

DRUGS (3)
  1. GLEEVEC [Concomitant]
     Active Substance: IMATINIB MESYLATE
  2. SPRYCEL [Suspect]
     Active Substance: DASATINIB
     Indication: CHRONIC MYELOID LEUKAEMIA
  3. TASIGNA [Concomitant]
     Active Substance: NILOTINIB
     Indication: CHRONIC MYELOID LEUKAEMIA

REACTIONS (1)
  - Dyspnoea [Unknown]
